FAERS Safety Report 8087363-3 (Version None)
Quarter: 2012Q1

REPORT INFORMATION
  Report Type: 
  Country: None (occurrence: None)
  Receive Date: 20120128
  Receipt Date: 20110502
  Transmission Date: 20120608
  Serious: No
  Sender: FDA-Public Use
  Company Number: US-ABBOTT-11P-163-0724213-00

PATIENT
  Sex: Female
  Weight: 64.922 kg

DRUGS (15)
  1. EFFEXOR [Concomitant]
     Indication: DEPRESSION
  2. AMITIZA [Concomitant]
     Indication: CONSTIPATION
  3. BACLOFEN [Concomitant]
     Indication: MYALGIA
  4. HUMIRA [Suspect]
     Indication: CROHN'S DISEASE
     Dates: start: 20100901
  5. ALIGN [Concomitant]
     Indication: PROBIOTIC THERAPY
  6. MIRALAX [Concomitant]
     Indication: CONSTIPATION
  7. FLEXERIL [Concomitant]
     Indication: ARTHRALGIA
  8. ONDANSETRON HCL [Concomitant]
     Indication: NAUSEA
  9. NIMADA [Concomitant]
     Indication: PRODUCT USED FOR UNKNOWN INDICATION
  10. SKELAXIN [Concomitant]
     Indication: ARTHRALGIA
  11. OXYCODONE HCL [Concomitant]
     Indication: PAIN
  12. ANUSOL HC [Concomitant]
     Indication: HAEMORRHOIDS
  13. KLONOPIN [Concomitant]
     Indication: DEPRESSION
  14. FENTANYL [Concomitant]
     Indication: PAIN
  15. VITAMIN D [Concomitant]
     Indication: VITAMIN SUPPLEMENTATION

REACTIONS (1)
  - ARTHRALGIA [None]
